FAERS Safety Report 10157700 (Version 1)
Quarter: 2014Q2

REPORT INFORMATION
  Report Type: Spontaneous
  Country: BR (occurrence: BR)
  Receive Date: 20140507
  Receipt Date: 20140507
  Transmission Date: 20141212
  Serious: Yes (Hospitalization, Other)
  Sender: FDA-Public Use
  Company Number: BR-JNJFOC-20140500670

PATIENT
  Age: 53 Year
  Sex: Male
  Weight: 40 kg

DRUGS (11)
  1. DUROGESIC D-TRANS [Suspect]
     Indication: ANALGESIC THERAPY
     Route: 062
     Dates: start: 20140217, end: 20140217
  2. AMITRIPTYLINE [Concomitant]
     Route: 048
     Dates: start: 20140216, end: 20140219
  3. GABAPENTIN [Concomitant]
     Route: 048
     Dates: start: 20140216, end: 20140220
  4. HALOPERIDOL [Concomitant]
     Route: 048
     Dates: start: 20140216, end: 20140216
  5. BISACODIL [Concomitant]
     Route: 048
     Dates: start: 20140216, end: 20140220
  6. KETOPROFEN [Concomitant]
     Route: 042
     Dates: start: 20140216, end: 20140220
  7. DIMENHYDRINATE [Concomitant]
     Route: 042
     Dates: start: 20140216, end: 20140220
  8. DIPYRONE [Concomitant]
     Route: 042
     Dates: start: 20140216, end: 20140220
  9. METOCLOPRAMIDE [Concomitant]
     Route: 042
     Dates: start: 20140216, end: 20140218
  10. OMEPRAZOLE [Concomitant]
     Route: 042
     Dates: start: 20140219, end: 20140220
  11. ONDANSETRON [Concomitant]
     Route: 042
     Dates: start: 20140216, end: 20140220

REACTIONS (6)
  - Depressed level of consciousness [Recovered/Resolved]
  - Bradypnoea [Recovered/Resolved]
  - Tachycardia [Recovered/Resolved]
  - Unresponsive to stimuli [Recovered/Resolved]
  - Hepatic enzyme abnormal [Unknown]
  - Wrong technique in drug usage process [Unknown]
